FAERS Safety Report 24981817 (Version 1)
Quarter: 2025Q1

REPORT INFORMATION
  Report Type: Spontaneous
  Country: US (occurrence: None)
  Receive Date: 20250218
  Receipt Date: 20250218
  Transmission Date: 20250409
  Serious: Yes (Hospitalization)
  Sender: FDA-CTU
  Company Number: None

PATIENT
  Sex: Male

DRUGS (6)
  1. PULMOZYME [Suspect]
     Active Substance: DORNASE ALFA
     Indication: Cystic fibrosis lung
     Dosage: FREQUENCY : DAILY;?
     Route: 055
     Dates: start: 201907
  2. VANCOMYCIN [Suspect]
     Active Substance: VANCOMYCIN
     Indication: Cystic fibrosis lung
     Dosage: FREQUENCY : TWICE A DAY;?
     Route: 055
     Dates: start: 201909
  3. CAYSTON [Suspect]
     Active Substance: AZTREONAM
  4. TOBRAMYCIN [Suspect]
     Active Substance: TOBRAMYCIN
  5. STERILE WATER SDV [Concomitant]
  6. COLISTIMETHATE SOD [Concomitant]

REACTIONS (3)
  - COVID-19 [None]
  - Influenza [None]
  - Toe amputation [None]
